FAERS Safety Report 9155933 (Version 1)
Quarter: 2013Q1

REPORT INFORMATION
  Report Type: Spontaneous
  Country: JP (occurrence: JP)
  Receive Date: 20130311
  Receipt Date: 20130311
  Transmission Date: 20140127
  Serious: Yes (Other)
  Sender: FDA-Public Use
  Company Number: PHHY2011JP71619

PATIENT
  Age: 5 Year
  Sex: Female

DRUGS (3)
  1. CARBOPLATIN [Suspect]
     Indication: GERM CELL CANCER
     Dosage: 450 MG/M2, UNK
  2. ETOPOSIDE [Suspect]
     Indication: GERM CELL CANCER
     Dosage: 150 MG/M2, UNK
  3. RADIATION [Suspect]

REACTIONS (4)
  - Haemangioma [Unknown]
  - Bone marrow failure [Unknown]
  - White blood cell count decreased [Unknown]
  - Platelet count decreased [Unknown]
